FAERS Safety Report 25764145 (Version 1)
Quarter: 2025Q3

REPORT INFORMATION
  Report Type: Spontaneous
  Country: US (occurrence: US)
  Receive Date: 20250905
  Receipt Date: 20250905
  Transmission Date: 20251020
  Serious: Yes (Other)
  Sender: SANOFI AVENTIS
  Company Number: US-SA-2025SA264415

PATIENT
  Sex: Male
  Weight: 77.098 kg

DRUGS (8)
  1. DUPIXENT [Suspect]
     Active Substance: DUPILUMAB
     Indication: Dermatitis atopic
     Dosage: 300 MG, QOW
     Route: 058
  2. LOSARTAN POTASSIUM [Concomitant]
     Active Substance: LOSARTAN POTASSIUM
  3. EZETIMIBE [Concomitant]
     Active Substance: EZETIMIBE
  4. MULTAQ [Concomitant]
     Active Substance: DRONEDARONE
  5. ELIQUIS [Concomitant]
     Active Substance: APIXABAN
  6. RANOLAZINE [Concomitant]
     Active Substance: RANOLAZINE
  7. SILODOSIN [Concomitant]
     Active Substance: SILODOSIN
  8. CRESTOR [Concomitant]
     Active Substance: ROSUVASTATIN CALCIUM

REACTIONS (1)
  - Atrial fibrillation [Unknown]
